FAERS Safety Report 15835855 (Version 1)
Quarter: 2019Q1

REPORT INFORMATION
  Report Type: Report from Study
  Country: None (occurrence: DE)
  Receive Date: 20190117
  Receipt Date: 20190117
  Transmission Date: 20190417
  Serious: Yes (Hospitalization)
  Sender: FDA-Public Use
  Company Number: DE-ABBVIE-18S-062-2601774-00

PATIENT
  Sex: Female

DRUGS (4)
  1. DUODOPA [Suspect]
     Active Substance: CARBIDOPA\LEVODOPA
     Dosage: MD 3.5ML / CRD 3.4ML/H / CRN 2.5ML / ED 1.5 ML
     Route: 050
     Dates: start: 20171004
  2. CARMEN [Concomitant]
     Active Substance: LERCANIDIPINE
     Indication: PRODUCT USED FOR UNKNOWN INDICATION
  3. CANDESARTAN. [Concomitant]
     Active Substance: CANDESARTAN
     Indication: PRODUCT USED FOR UNKNOWN INDICATION
  4. DUODOPA [Suspect]
     Active Substance: CARBIDOPA\LEVODOPA
     Indication: PARKINSON^S DISEASE
     Dosage: MD 3 ML; CRD 3.5 ML/ H - 3.7 ML/ H; CRD 2.9 ML/ H; ED 1.5 M
     Route: 050
     Dates: start: 20171004

REACTIONS (3)
  - Seizure [Unknown]
  - Hallucination [Unknown]
  - Delusion [Unknown]
